FAERS Safety Report 10889715 (Version 1)
Quarter: 2015Q1

REPORT INFORMATION
  Report Type: Spontaneous
  Country: DE (occurrence: DE)
  Receive Date: 20150306
  Receipt Date: 20150306
  Transmission Date: 20150721
  Serious: Yes (Hospitalization)
  Sender: FDA-Public Use
  Company Number: DE-ABBVIE-15K-062-1354579-00

PATIENT
  Sex: Female

DRUGS (2)
  1. HUMIRA [Suspect]
     Active Substance: ADALIMUMAB
     Indication: CROHN^S DISEASE
     Route: 065
     Dates: start: 20150203, end: 20150203
  2. HUMIRA [Suspect]
     Active Substance: ADALIMUMAB
     Route: 065
     Dates: start: 20150217

REACTIONS (6)
  - Pyrexia [Unknown]
  - Malaise [Unknown]
  - Meningitis herpes [Unknown]
  - C-reactive protein increased [Unknown]
  - Rash [Unknown]
  - Vasculitis [Unknown]

NARRATIVE: CASE EVENT DATE: 201502
